FAERS Safety Report 16852368 (Version 1)
Quarter: 2019Q3

REPORT INFORMATION
  Report Type: Spontaneous
  Country: US (occurrence: US)
  Receive Date: 20190925
  Receipt Date: 20190925
  Transmission Date: 20191005
  Serious: Yes (Hospitalization)
  Sender: FDA-Public Use
  Company Number: US-JNJFOC-20190927580

PATIENT
  Age: 59 Year
  Sex: Female

DRUGS (1)
  1. INVOKANA [Suspect]
     Active Substance: CANAGLIFLOZIN
     Indication: PRODUCT USED FOR UNKNOWN INDICATION
     Route: 048

REACTIONS (5)
  - Sepsis [Unknown]
  - Renal tubular necrosis [Recovered/Resolved]
  - Gangrene [Unknown]
  - Diabetic ketoacidosis [Recovered/Resolved]
  - Foot amputation [Unknown]

NARRATIVE: CASE EVENT DATE: 20160410
